FAERS Safety Report 5169814-7 (Version None)
Quarter: 2006Q4

REPORT INFORMATION
  Report Type: 
  Country: None (occurrence: None)
  Receive Date: 20061212
  Receipt Date: 20061204
  Transmission Date: 20070319
  Serious: Yes (Hospitalization, Other)
  Sender: FDA-Public Use
  Company Number: BR-BAYER-200616219GDS

PATIENT
  Age: 25 Year
  Sex: Male
  Weight: 70 kg

DRUGS (2)
  1. AVELOX [Suspect]
     Indication: BRONCHITIS
     Dosage: TOTAL DAILY DOSE: 400 MG  UNIT DOSE: 400 MG
     Route: 048
     Dates: start: 20061123, end: 20061129
  2. PREDNISOLONE [Concomitant]
     Indication: BRONCHITIS
     Route: 048
     Dates: start: 20061123, end: 20061128

REACTIONS (13)
  - ABDOMINAL PAIN [None]
  - COUGH [None]
  - HAEMATOMA [None]
  - HEADACHE [None]
  - HYPERHIDROSIS [None]
  - NAUSEA [None]
  - OESOPHAGEAL PAIN [None]
  - PAIN IN EXTREMITY [None]
  - PHARYNGOLARYNGEAL PAIN [None]
  - RASH MACULO-PAPULAR [None]
  - THROAT IRRITATION [None]
  - THROMBOCYTOPENIA [None]
  - THROMBOSIS [None]
